FAERS Safety Report 9832201 (Version 1)
Quarter: 2014Q1

REPORT INFORMATION
  Report Type: Spontaneous
  Country: BR (occurrence: BR)
  Receive Date: 20140121
  Receipt Date: 20140121
  Transmission Date: 20141002
  Serious: Yes (Other)
  Sender: FDA-Public Use
  Company Number: BR-009507513-1401BRA007469

PATIENT
  Age: 75 Year
  Sex: Male
  Weight: 105 kg

DRUGS (9)
  1. ZETSIM [Suspect]
     Dosage: UNK
     Route: 048
  2. CLOPIN [Concomitant]
     Dosage: UNK, UNKNOWN
  3. VASTAREL [Concomitant]
     Dosage: UNK, UNKNOWN
  4. SOTACOR [Concomitant]
     Dosage: UNK, UNKNOWN
  5. GLIFAGE [Concomitant]
     Dosage: UNK, UNKNOWN
  6. SYNTHROID [Concomitant]
     Dosage: UNK, UNKNOWN
  7. ZYLORIC [Concomitant]
     Dosage: UNK, UNKNOWN
  8. DOXAZOSIN MESYLATE (DUOMO) [Concomitant]
     Dosage: UNK, UNKNOWN
  9. RIVOTRIL [Concomitant]
     Dosage: UNK, UNKNOWN

REACTIONS (7)
  - Lung neoplasm malignant [Unknown]
  - Renal cancer [Unknown]
  - Neoplasm malignant [Unknown]
  - Blood testosterone decreased [Not Recovered/Not Resolved]
  - Neuropathy peripheral [Unknown]
  - Pruritus [Recovered/Resolved]
  - Pruritus [Recovered/Resolved]
